FAERS Safety Report 9908073 (Version 6)
Quarter: 2014Q2

REPORT INFORMATION
  Report Type: Report from Study
  Country: AU (occurrence: AU)
  Receive Date: 20140219
  Receipt Date: 20140507
  Transmission Date: 20141212
  Serious: No
  Sender: FDA-Public Use
  Company Number: AU-ROCHE-1335921

PATIENT
  Age: 58 Year
  Sex: Female

DRUGS (1)
  1. ACTEMRA [Suspect]
     Indication: RHEUMATOID ARTHRITIS
     Dosage: HALF DOSE.
     Route: 042
     Dates: start: 20101007

REACTIONS (5)
  - Skin ulcer [Recovering/Resolving]
  - Skin ulcer [Recovering/Resolving]
  - Blood potassium decreased [Unknown]
  - Blood urea abnormal [Unknown]
  - Oropharyngeal pain [Recovering/Resolving]
